FAERS Safety Report 24788924 (Version 1)
Quarter: 2024Q4

REPORT INFORMATION
  Report Type: Spontaneous
  Country: US (occurrence: None)
  Receive Date: 20241228
  Receipt Date: 20241228
  Transmission Date: 20250115
  Serious: Yes (unspecified)
  Sender: Public
  Company Number: None

PATIENT
  Sex: Female

DRUGS (1)
  1. ABILIFY [Suspect]
     Active Substance: ARIPIPRAZOLE

REACTIONS (5)
  - Oculogyric crisis [None]
  - Vision blurred [None]
  - Nausea [None]
  - Eye pain [None]
  - Impaired driving ability [None]

NARRATIVE: CASE EVENT DATE: 20240801
